FAERS Safety Report 6649518-1 (Version None)
Quarter: 2010Q1

REPORT INFORMATION
  Report Type: 
  Country: None (occurrence: None)
  Receive Date: 20100324
  Receipt Date: 20100324
  Transmission Date: 20100710
  Serious: Yes (Hospitalization)
  Sender: FDA-Public Use
  Company Number: None

PATIENT
  Age: 49 Year
  Sex: Female
  Weight: 75.2971 kg

DRUGS (24)
  1. MYFORTIC [Suspect]
     Indication: ABDOMINAL DISCOMFORT
     Dosage: 720 MG TWICE DAILY PO
     Route: 048
  2. MAGNESIUM OXIDE 400 MG [Suspect]
     Indication: HYPOMAGNESAEMIA
     Dosage: 400 MG TWICE DAILY PO
     Route: 048
  3. PROGRAF [Concomitant]
  4. MYFORTIC [Concomitant]
  5. PREDNISONE TAB [Concomitant]
  6. AZITHROMYCIN [Concomitant]
  7. DAPSONE [Concomitant]
  8. NYSTATIN [Concomitant]
  9. CALCIUM -ELEMENTAL- [Concomitant]
  10. ACTONEL [Concomitant]
  11. CLONIDINE [Concomitant]
  12. EPOETIN [Concomitant]
  13. DRISDOL  /VITAMIN D [Concomitant]
  14. LEVEMIR [Concomitant]
  15. LYRICA [Concomitant]
  16. NEXIUM [Concomitant]
  17. NITROGLYCERIN [Concomitant]
  18. NOVOLOG [Concomitant]
  19. ZOLPIDEM [Concomitant]
  20. ROBITUSSIN -AMBIEN- [Concomitant]
  21. WELLBUTRIN [Concomitant]
  22. XALATAN [Concomitant]
  23. ASOPT [Concomitant]
  24. BENZONATATE (TESSALON) [Concomitant]

REACTIONS (3)
  - DIARRHOEA [None]
  - HAEMODIALYSIS [None]
  - RENAL FAILURE ACUTE [None]
